FAERS Safety Report 7651082-5 (Version None)
Quarter: 2011Q3

REPORT INFORMATION
  Report Type: 
  Country: None (occurrence: None)
  Receive Date: 20110802
  Receipt Date: 20110623
  Transmission Date: 20111222
  Serious: Yes (Other)
  Sender: FDA-Public Use
  Company Number: PHHY2011SE55783

PATIENT
  Sex: Female

DRUGS (2)
  1. ACETAMINOPHEN [Concomitant]
     Dosage: UNK UKN, UNK
  2. DICLOFENAC SODIUM [Suspect]
     Dosage: UNK UKN, UNK

REACTIONS (3)
  - HALLUCINATION, VISUAL [None]
  - FEELING ABNORMAL [None]
  - HALLUCINATION, AUDITORY [None]
